FAERS Safety Report 17024465 (Version 2)
Quarter: 2019Q4

REPORT INFORMATION
  Report Type: Report from Study
  Country: US (occurrence: US)
  Receive Date: 20191113
  Receipt Date: 20191206
  Transmission Date: 20200122
  Serious: No
  Sender: FDA-Public Use
  Company Number: NVSC2019US032363

PATIENT
  Sex: Male

DRUGS (3)
  1. CELEBREX [Concomitant]
     Active Substance: CELECOXIB
     Indication: PRODUCT USED FOR UNKNOWN INDICATION
     Route: 065
  2. ILARIS [Suspect]
     Active Substance: CANAKINUMAB
     Indication: STILL^S DISEASE
     Dosage: 75 MG (EVERY 28 DAYS)
     Route: 058
     Dates: start: 20181029
  3. ILARIS [Suspect]
     Active Substance: CANAKINUMAB
     Dosage: 100 MG (EVERY 28 DAYS)
     Route: 058
     Dates: start: 20181029

REACTIONS (1)
  - Drug ineffective [Recovered/Resolved]
